FAERS Safety Report 4663680-1 (Version None)
Quarter: 2005Q2

REPORT INFORMATION
  Report Type: 
  Country: None (occurrence: None)
  Receive Date: 20050517
  Receipt Date: 20050421
  Transmission Date: 20051028
  Serious: Yes (Other)
  Sender: FDA-Public Use
  Company Number: 2005072098

PATIENT
  Sex: Male

DRUGS (1)
  1. NATURAL CITRUS LISTERINE (MENTHOL, METHYL SALICYLATE, EUCALYPTOL, THYM [Suspect]
     Dosage: ORAL, TOPICAL
     Route: 048

REACTIONS (4)
  - DYSPNOEA [None]
  - FEELING ABNORMAL [None]
  - HAEMATEMESIS [None]
  - VOMITING [None]
